FAERS Safety Report 5231631-7 (Version None)
Quarter: 2007Q1

REPORT INFORMATION
  Report Type: 
  Country: None (occurrence: None)
  Receive Date: 20070202
  Receipt Date: 20070123
  Transmission Date: 20070707
  Serious: Yes (Hospitalization)
  Sender: FDA-Public Use
  Company Number: 235448

PATIENT
  Age: 46 Year
  Sex: Male

DRUGS (5)
  1. AVASTIN [Suspect]
     Indication: GLIOMA
     Dosage: 10 MG/KG, DAYS 1 + 15, INTRAVENOUS
     Route: 042
     Dates: start: 20061103
  2. RADIATION THERAPY (RADIATION THERAPY) [Suspect]
     Indication: GLIOMA
  3. KEPPRA [Concomitant]
  4. TRILEPTAL (OXCARBAZSEPINE) [Concomitant]
  5. HYZAAR (HYDROCHLOROTHIAZIDE, LOSARTAN POSTASSIUM) [Concomitant]

REACTIONS (2)
  - CONVULSION [None]
  - HYPONATRAEMIA [None]
